FAERS Safety Report 15651132 (Version 1)
Quarter: 2018Q4

REPORT INFORMATION
  Report Type: Report from Study
  Country: JP (occurrence: JP)
  Receive Date: 20181123
  Receipt Date: 20181123
  Transmission Date: 20190205
  Serious: Yes (Death, Life-Threatening, Other)
  Sender: FDA-Public Use
  Company Number: JP-AMGEN-JPNNI2018168606

PATIENT
  Age: 63 Year
  Sex: Male
  Weight: 67 kg

DRUGS (11)
  1. CARFILZOMIB [Suspect]
     Active Substance: CARFILZOMIB
     Indication: PLASMA CELL MYELOMA
     Dosage: 20 MG/M2/DAY
     Route: 041
     Dates: start: 20170525, end: 20170526
  2. ACICLOVIR [Concomitant]
     Active Substance: ACYCLOVIR
     Indication: ANTIVIRAL PROPHYLAXIS
     Dosage: 200 MG, EVERYDAY
     Route: 065
     Dates: start: 20170622, end: 20170926
  3. CARFILZOMIB [Suspect]
     Active Substance: CARFILZOMIB
     Dosage: 56 MG/M2/DAY
     Route: 041
     Dates: start: 20170601, end: 20180602
  4. DEXAMETHASONE. [Concomitant]
     Active Substance: DEXAMETHASONE
     Indication: PLASMA CELL MYELOMA
     Dosage: 20 MG
     Route: 065
     Dates: start: 20170525, end: 20170908
  5. VALTREX [Concomitant]
     Active Substance: VALACYCLOVIR HYDROCHLORIDE
     Indication: ANTIVIRAL PROPHYLAXIS
     Dosage: 3 G, EVERYDAY
     Route: 065
     Dates: start: 20170613, end: 20170619
  6. CARFILZOMIB [Suspect]
     Active Substance: CARFILZOMIB
     Dosage: 44 MG/M2/DAY
     Route: 041
     Dates: start: 20170908, end: 20170908
  7. CARFILZOMIB [Suspect]
     Active Substance: CARFILZOMIB
     Dosage: 56 MG/M2/DAY
     Route: 041
     Dates: start: 20170608, end: 20180609
  8. CARFILZOMIB [Suspect]
     Active Substance: CARFILZOMIB
     Dosage: 56 MG/M2/DAY
     Route: 041
     Dates: start: 20170629, end: 20170706
  9. CARFILZOMIB [Suspect]
     Active Substance: CARFILZOMIB
     Dosage: 56 MG/M2/DAY
     Route: 041
     Dates: start: 20170825, end: 20170825
  10. CARFILZOMIB [Suspect]
     Active Substance: CARFILZOMIB
     Dosage: 56 MG/M2/DAY
     Route: 041
     Dates: start: 20170622, end: 20180623
  11. CARFILZOMIB [Suspect]
     Active Substance: CARFILZOMIB
     Dosage: 56 MG/M2/DAY
     Route: 041
     Dates: start: 20170728, end: 20170810

REACTIONS (2)
  - Thrombocytopenia [Recovering/Resolving]
  - Thrombocytopenia [Not Recovered/Not Resolved]

NARRATIVE: CASE EVENT DATE: 20170728
